FAERS Safety Report 10469675 (Version 9)
Quarter: 2016Q3

REPORT INFORMATION
  Report Type: Spontaneous
  Country: US (occurrence: US)
  Receive Date: 20140923
  Receipt Date: 20160913
  Transmission Date: 20161109
  Serious: Yes (Other)
  Sender: FDA-Public Use
  Company Number: US-PFIZER INC-2014081321

PATIENT
  Age: 48 Year
  Sex: Female
  Weight: 97.52 kg

DRUGS (40)
  1. LYRICA [Suspect]
     Active Substance: PREGABALIN
     Dosage: 75 MG, 1X/DAY
     Route: 048
     Dates: start: 20140314
  2. HYDROCODONE BITARTRATE, PARACETAMOL [Concomitant]
     Active Substance: ACETAMINOPHEN\HYDROCODONE BITARTRATE
     Indication: RHEUMATOID ARTHRITIS
     Dosage: [HYDROCODONE BITARTRATE 10 MG]/[ACETAMINOPHEN 325MG]
  3. METFORMIN [Concomitant]
     Active Substance: METFORMIN HYDROCHLORIDE
     Indication: DIABETES MELLITUS
     Dosage: 500 MG TABLET 3 PER DAY
  4. HYDROCHLOROTHIAZIDE. [Concomitant]
     Active Substance: HYDROCHLOROTHIAZIDE
     Indication: BLOOD PRESSURE ABNORMAL
     Dosage: 25 MG, 1X/DAY
  5. ATORVASTATIN [Concomitant]
     Active Substance: ATORVASTATIN
     Indication: BLOOD CHOLESTEROL ABNORMAL
     Dosage: 20 MG, 1X/DAY BEDTIME
  6. AMITRIPTYLINE HCL [Concomitant]
     Active Substance: AMITRIPTYLINE
     Dosage: 25 MG, 2X/DAY
     Dates: start: 20101026
  7. CYCLOBENZAPRINE HCL [Concomitant]
     Active Substance: CYCLOBENZAPRINE HYDROCHLORIDE
     Dosage: 10 MG, 3X/DAY AS NEEDED
     Dates: start: 20100630
  8. LORATADINE. [Concomitant]
     Active Substance: LORATADINE
     Dosage: 10 MG, 1X/DAY
     Route: 048
     Dates: start: 20160205
  9. LYRICA [Suspect]
     Active Substance: PREGABALIN
     Dosage: 1 DF, DAILY
     Route: 048
  10. FUROSEMIDE. [Concomitant]
     Active Substance: FUROSEMIDE
     Indication: FLUID RETENTION
     Dosage: 40 MG, 1X/DAY
     Route: 048
  11. CENTRUM [Concomitant]
     Active Substance: VITAMINS
     Dosage: 1 DF, DAILY
  12. METFORMIN HCL [Concomitant]
     Active Substance: METFORMIN HYDROCHLORIDE
     Dosage: 500 MG, 2X/DAY
     Dates: start: 20100820
  13. LYRICA [Suspect]
     Active Substance: PREGABALIN
     Indication: FIBROMYALGIA
     Dosage: 75 MG, 2X/DAY
     Route: 048
  14. OMEPRAZOLE. [Concomitant]
     Active Substance: OMEPRAZOLE
     Indication: GASTROOESOPHAGEAL REFLUX DISEASE
     Dosage: 40 MG, 2X/DAY
     Route: 048
  15. CINNAMON 500 MG PLUS CHROMIUM METABOLISM SUPPORT [Concomitant]
     Dosage: 2 DF, 2X/DAY
  16. HEALTHY EYES EYE VITAMIN AND MINERAL SUPPLEMENT WITH LUTEIN AND ZINC B [Concomitant]
     Dosage: 1 DF, DAILY
  17. COENZYME Q10 [Concomitant]
     Active Substance: UBIDECARENONE
     Dosage: 2 DF, DAILY (TWO A DAY)
  18. NAPROXEN SODIUM. [Concomitant]
     Active Substance: NAPROXEN SODIUM
     Dosage: 500 MG, 2X/DAY AS NEEDED
     Dates: start: 20100517
  19. NORCO [Concomitant]
     Active Substance: ACETAMINOPHEN\HYDROCODONE BITARTRATE
     Indication: RHEUMATOID ARTHRITIS
     Dosage: [HYDROCODONE BITARTRATE 10MG/PARACETAMOL 3.5 MG] TABLET, 3 TABLETS PER DAY
  20. FUROSEMIDE. [Concomitant]
     Active Substance: FUROSEMIDE
     Indication: OEDEMA
     Dosage: 40 MG, 1X/DAY
     Route: 048
     Dates: start: 20160205
  21. POTASSIUM CHLORIDE CRYS CR [Concomitant]
     Dosage: 10 MEQ, 2X/DAY
     Route: 048
     Dates: start: 20160205
  22. MEDROXYPROGESTERON ACETATE [Concomitant]
     Dosage: 10 MG, 1X/DAY (FOR 1ST 10 DAYS OF EVERY MONTH)
  23. POTASSIUM CL ER [Concomitant]
     Active Substance: POTASSIUM CHLORIDE
     Indication: BLOOD POTASSIUM DECREASED
     Dosage: 20 MEQ, 2X/DAY
  24. ASPIRIN 81 [Concomitant]
     Active Substance: ASPIRIN
     Dosage: 2 DF, DAILY
  25. OMEPRAZOLE. [Concomitant]
     Active Substance: OMEPRAZOLE
     Dosage: 40 MG, 2X/DAY
     Route: 048
     Dates: start: 20160205
  26. AZITHROMYCIN ANHYDROUS. [Concomitant]
     Active Substance: AZITHROMYCIN ANHYDROUS
     Dosage: 250 MG TABS AT 2 TABLETS ON 1ST DAY, THEN ONE TABLET EVERY DAY FOR 4 DAYS
     Dates: start: 20160205
  27. BIOTIN [Concomitant]
     Active Substance: BIOTIN
     Indication: ROUTINE HEALTH MAINTENANCE
     Dosage: 10000 ?G, 1X/DAY MORNING
  28. FISH, FLAXSEED, BORAGE OIL OMEGA 3,6,9 [Concomitant]
     Dosage: 2 DF, DAILY (2 A DAY)
  29. CALCIUM 500+D3 [Concomitant]
     Indication: BONE DISORDER
     Dosage: 1 DF (600 IU VITAMIN D), 2X/DAY
  30. ASPIRIN 81 [Concomitant]
     Active Substance: ASPIRIN
     Dosage: 81 MG, 2X/DAY
     Route: 048
     Dates: start: 20160205
  31. PRILOSEC [Concomitant]
     Active Substance: OMEPRAZOLE MAGNESIUM
     Dosage: 20 MG, UNK
  32. LISINOPRIL. [Concomitant]
     Active Substance: LISINOPRIL
     Dosage: 10 MG, 1X/DAY
     Route: 048
     Dates: start: 20160205
  33. DICYCLOMINE [Concomitant]
     Active Substance: DICYCLOMINE HYDROCHLORIDE
     Indication: DIVERTICULUM
     Dosage: 10 MG, 3X/DAY
  34. LEVOTHYROXINE. [Concomitant]
     Active Substance: LEVOTHYROXINE
     Indication: THYROID DISORDER
     Dosage: 50 ?G, 1X/DAY EVERY MORNING
  35. IRON FERROUS SULFATE [Concomitant]
     Indication: IRON DEFICIENCY
     Dosage: 1 DF (65 MG IRON, 325 MG FERROUS SULPHATE), DAILY
  36. LYRICA [Suspect]
     Active Substance: PREGABALIN
     Indication: FIBROMYALGIA
     Dosage: 50 MG, 2X/DAY
     Route: 048
     Dates: start: 2001
  37. LYRICA [Suspect]
     Active Substance: PREGABALIN
     Dosage: 50 MG, 2X/DAY
     Route: 048
     Dates: start: 2013
  38. LISINOPRIL. [Concomitant]
     Active Substance: LISINOPRIL
     Indication: BLOOD PRESSURE ABNORMAL
     Dosage: 10 MG, 1X/DAY
     Route: 048
  39. VITAMIN B12 METHYLCOBALAMIN [Concomitant]
     Dosage: 2500 UG, WEEKLY
     Route: 060
  40. VITAMIN D [Concomitant]
     Active Substance: CHOLECALCIFEROL
     Dosage: 5000 IU, DAILY

REACTIONS (7)
  - Back pain [Unknown]
  - Pancreatic cyst [Not Recovered/Not Resolved]
  - Splenic cyst [Not Recovered/Not Resolved]
  - Pain [Unknown]
  - Condition aggravated [Unknown]
  - Abdominal pain upper [Unknown]
  - Intentional product misuse [Unknown]

NARRATIVE: CASE EVENT DATE: 20140314
